FAERS Safety Report 8632877 (Version 4)
Quarter: 2012Q4

REPORT INFORMATION
  Report Type: Report from Study
  Country: DE (occurrence: DE)
  Receive Date: 20120625
  Receipt Date: 20120924
  Transmission Date: 20130627
  Serious: Yes (Death, Hospitalization)
  Sender: FDA-Public Use
  Company Number: DE-ROCHE-1080632

PATIENT
  Age: 52 Year
  Sex: Male

DRUGS (8)
  1. COPEGUS [Suspect]
     Indication: HEPATITIS C
     Route: 048
     Dates: start: 20120223, end: 20120608
  2. PEGASYS [Suspect]
     Indication: HEPATITIS C
     Route: 058
     Dates: start: 20120223, end: 20120608
  3. DACLATASVIR [Suspect]
     Indication: HEPATITIS C
     Route: 048
     Dates: start: 20120223, end: 20120608
  4. REYATAZ [Concomitant]
     Route: 065
     Dates: start: 20120202
  5. NORVIR [Concomitant]
     Route: 065
     Dates: start: 20111123
  6. TRUVADA [Concomitant]
     Route: 065
     Dates: start: 20110705
  7. COTRIM DS [Concomitant]
     Route: 065
     Dates: start: 20110629
  8. METOCLOPRAMIDE [Concomitant]
     Route: 065
     Dates: start: 20111027

REACTIONS (2)
  - Cardiac failure congestive [Fatal]
  - Pancytopenia [Fatal]
